FAERS Safety Report 8204790-1 (Version None)
Quarter: 2012Q1

REPORT INFORMATION
  Report Type: 
  Country: None (occurrence: None)
  Receive Date: 20120313
  Receipt Date: 20120302
  Transmission Date: 20120608
  Serious: Yes (Death, Other)
  Sender: FDA-Public Use
  Company Number: JP-PFIZER INC-2010048007

PATIENT
  Age: 83 Year
  Sex: Male
  Weight: 61 kg

DRUGS (11)
  1. PLATELETS, HUMAN BLOOD [Concomitant]
     Dosage: 10 UNITS
     Dates: start: 20090214, end: 20090214
  2. VFEND [Suspect]
     Dosage: 200 MG, 2X/DAY
     Route: 048
     Dates: start: 20090207, end: 20090213
  3. VFEND [Suspect]
     Dosage: 200 MG, 2X/DAY
     Route: 048
     Dates: start: 20090226, end: 20090304
  4. TARGOCID [Concomitant]
     Indication: INFECTION
     Dosage: UNK
     Route: 042
     Dates: start: 20090206, end: 20090325
  5. NEUTROGIN [Concomitant]
     Indication: INFECTION
     Dosage: UNK
     Route: 058
     Dates: start: 20090101, end: 20090216
  6. PASIL [Concomitant]
     Indication: INFECTION
     Dosage: UNK
     Route: 042
     Dates: start: 20090130, end: 20090206
  7. ZOSYN [Concomitant]
     Indication: INFECTION
     Dosage: UNK
     Route: 042
     Dates: start: 20090206, end: 20090303
  8. MINOCYCLINE [Concomitant]
     Indication: INFECTION
     Dosage: UNK
     Route: 042
     Dates: start: 20090127, end: 20090307
  9. MEROPENEM [Concomitant]
     Indication: INFECTION
     Dosage: UNK
     Route: 042
     Dates: start: 20090129, end: 20090206
  10. VFEND [Suspect]
     Indication: SCEDOSPORIUM INFECTION
     Dosage: 200 MG, 1X/DAY
     Route: 048
     Dates: start: 20090206, end: 20090206
  11. NEUTROGIN [Concomitant]
     Indication: NEUTROPENIA

REACTIONS (8)
  - VISUAL IMPAIRMENT [None]
  - CEREBRAL INFARCTION [None]
  - DEPRESSED LEVEL OF CONSCIOUSNESS [None]
  - DIZZINESS [None]
  - FUNGAEMIA [None]
  - HALLUCINATION [None]
  - DISORIENTATION [None]
  - HALLUCINATION, VISUAL [None]
